FAERS Safety Report 6329789-1 (Version None)
Quarter: 2009Q3

REPORT INFORMATION
  Report Type: 
  Country: None (occurrence: None)
  Receive Date: 20090826
  Receipt Date: 20090818
  Transmission Date: 20100115
  Serious: Yes (Other)
  Sender: FDA-Public Use
  Company Number: PHHY2009DE35012

PATIENT
  Age: 21 Year
  Sex: Male

DRUGS (1)
  1. IMATINIB MESYLATE [Suspect]
     Dosage: 600 MG/DAY

REACTIONS (8)
  - ANAEMIA [None]
  - DECREASED APPETITE [None]
  - DEPRESSION [None]
  - DISEASE PROGRESSION [None]
  - HEPATOMEGALY [None]
  - HYPOALBUMINAEMIA [None]
  - INTERNATIONAL NORMALISED RATIO INCREASED [None]
  - OEDEMA PERIPHERAL [None]
